FAERS Safety Report 4562791-9 (Version None)
Quarter: 2005Q1

REPORT INFORMATION
  Report Type: 
  Country: None (occurrence: None)
  Receive Date: 20050121
  Receipt Date: 20050112
  Transmission Date: 20050727
  Serious: Yes (Hospitalization)
  Sender: FDA-Public Use
  Company Number: 2004090127

PATIENT
  Age: 53 Year
  Sex: Female

DRUGS (1)
  1. TORVAST (ATORVASTATIN) [Suspect]
     Indication: HYPERCHOLESTEROLAEMIA
     Dosage: 40 MG (1 IN 1 D) ORAL
     Route: 048
     Dates: start: 20040917, end: 20041010

REACTIONS (4)
  - ALDOLASE INCREASED [None]
  - CHOLANGIOLITIS [None]
  - HEPATITIS CHOLESTATIC [None]
  - HEPATITIS TOXIC [None]
